FAERS Safety Report 13064656 (Version 1)
Quarter: 2016Q4

REPORT INFORMATION
  Report Type: Spontaneous
  Country: JP (occurrence: JP)
  Receive Date: 20161227
  Receipt Date: 20161227
  Transmission Date: 20170207
  Serious: Yes (Other)
  Sender: FDA-Public Use
  Company Number: JP-BAYER-2016-238147

PATIENT
  Sex: Male

DRUGS (3)
  1. HEPARIN [Interacting]
     Active Substance: HEPARIN SODIUM
     Indication: MYOCARDIAL INFARCTION
     Dosage: UNK
  2. ACETYLSALICYLIC ACID({=100 MG) [Suspect]
     Active Substance: ASPIRIN
     Indication: MYOCARDIAL INFARCTION
     Dosage: UNK
     Route: 048
  3. PRASUGREL [Interacting]
     Active Substance: PRASUGREL
     Indication: MYOCARDIAL INFARCTION
     Dosage: UNK
     Route: 048

REACTIONS (7)
  - Hepatic enzyme increased [Recovering/Resolving]
  - Pyrexia [None]
  - Drug interaction [None]
  - Drug administration error [None]
  - Jaundice [Recovering/Resolving]
  - Bile duct obstruction [None]
  - Haemobilia [Recovering/Resolving]
